FAERS Safety Report 17200905 (Version 5)
Quarter: 2020Q4

REPORT INFORMATION
  Report Type: Other
  Country: US (occurrence: US)
  Receive Date: 20191226
  Receipt Date: 20201125
  Transmission Date: 20210113
  Serious: Yes (Hospitalization, Other)
  Sender: FDA-Public Use
  Company Number: US-ROCHE-2501640

PATIENT
  Age: 83 Year
  Sex: Female
  Weight: 58.11 kg

DRUGS (11)
  1. ESBRIET [Suspect]
     Active Substance: PIRFENIDONE
     Dosage: TAKE 3 CAPSULE(S) BY MOUTH 3 TIMES A DAY
     Route: 048
  2. OXYGEN. [Concomitant]
     Active Substance: OXYGEN
  3. OMEPRAZOLE. [Concomitant]
     Active Substance: OMEPRAZOLE
     Route: 048
  4. ESBRIET [Suspect]
     Active Substance: PIRFENIDONE
     Indication: IDIOPATHIC PULMONARY FIBROSIS
     Dosage: TAKE 2 CAPSULE(S) BY MOUTH 3 TIMES A DAY
     Route: 048
     Dates: start: 201904
  5. ESBRIET [Suspect]
     Active Substance: PIRFENIDONE
     Indication: HYPOXIA
     Route: 048
     Dates: start: 201912
  6. ESBRIET [Suspect]
     Active Substance: PIRFENIDONE
     Route: 048
     Dates: start: 2019
  7. AMLODIPINE [Concomitant]
     Active Substance: AMLODIPINE BESYLATE
     Route: 048
  8. ASPIRIN. [Concomitant]
     Active Substance: ASPIRIN
     Route: 048
  9. ONDANSETRON [Concomitant]
     Active Substance: ONDANSETRON
     Route: 048
  10. ZOLEDRONIC ACID [Concomitant]
     Active Substance: ZOLEDRONIC ACID
     Route: 048
  11. CHOLECALCIFEROL [Concomitant]
     Active Substance: CHOLECALCIFEROL
     Route: 048

REACTIONS (20)
  - Abdominal pain [Not Recovered/Not Resolved]
  - Weight increased [Recovered/Resolved]
  - Lung disorder [Unknown]
  - Depression [Unknown]
  - COVID-19 [Unknown]
  - Aortic aneurysm [Unknown]
  - Decreased appetite [Unknown]
  - Fatigue [Unknown]
  - Pain [Recovered/Resolved]
  - Hypokinesia [Unknown]
  - Abdominal pain upper [Unknown]
  - Pneumonia [Recovered/Resolved]
  - Eating disorder [Recovered/Resolved]
  - Abdominal discomfort [Recovered/Resolved]
  - Gait disturbance [Recovered/Resolved]
  - Cystitis [Recovered/Resolved]
  - Reading disorder [Unknown]
  - Weight decreased [Unknown]
  - Feeding disorder [Unknown]
  - Mental disorder [Unknown]

NARRATIVE: CASE EVENT DATE: 2019
